FAERS Safety Report 9242213 (Version 2)
Quarter: 2013Q2

REPORT INFORMATION
  Report Type: Spontaneous
  Country: DE (occurrence: DE)
  Receive Date: 20130419
  Receipt Date: 20130509
  Transmission Date: 20140414
  Serious: Yes (Hospitalization, Other)
  Sender: FDA-Public Use
  Company Number: DE-PFIZER INC-2013122398

PATIENT
  Age: 72 Year
  Sex: Male
  Weight: 79 kg

DRUGS (4)
  1. PANTOZOL [Suspect]
     Indication: BARRETT^S OESOPHAGUS
     Dosage: 20 MG, DAILY (BEFORE BREAKFAST)
     Route: 065
     Dates: start: 2003
  2. CONCOR [Concomitant]
     Dosage: 2.5 MG,DAILY
  3. FOSINORM [Concomitant]
     Dosage: 20 MG, DAILY
  4. HYGROTON [Concomitant]
     Dosage: 25 MG, DAILY

REACTIONS (1)
  - Erythema [Not Recovered/Not Resolved]
